FAERS Safety Report 8143730-0 (Version None)
Quarter: 2012Q1

REPORT INFORMATION
  Report Type: 
  Country: None (occurrence: None)
  Receive Date: 20120217
  Receipt Date: 20120213
  Transmission Date: 20120608
  Serious: Yes (Hospitalization, Other)
  Sender: FDA-Public Use
  Company Number: FR-SHIRE-SPV1-2012-00112

PATIENT
  Sex: Male

DRUGS (8)
  1. ANAGRELIDE HYDROCHLORIDE [Suspect]
     Indication: ESSENTIAL THROMBOCYTHAEMIA
     Dosage: 5 CAPSULES, 1X/DAY:QD
     Route: 048
     Dates: start: 20110627, end: 20111208
  2. ANAGRELIDE HYDROCHLORIDE [Suspect]
     Dosage: 3 CAPSULES, 1X/DAY:QD
     Route: 048
     Dates: start: 20110111
  3. PLAVIX [Concomitant]
     Indication: PERIPHERAL ARTERIAL OCCLUSIVE DISEASE
     Dosage: UNK, UNKNOWN
     Route: 065
  4. ANAGRELIDE HYDROCHLORIDE [Suspect]
     Dosage: 1 CAPSULE, 2X/DAY:BID
     Route: 048
     Dates: start: 20101012
  5. METFORMIN HCL [Concomitant]
     Indication: TYPE 2 DIABETES MELLITUS
     Dosage: 1 DF, 1X/DAY:QD
  6. RAMIPRIL [Concomitant]
     Indication: PERIPHERAL ARTERIAL OCCLUSIVE DISEASE
     Dosage: 2.5 MG, (1 CAPSULE) 1X/DAY:QD
     Route: 065
  7. SPIRIVA [Concomitant]
     Indication: CHRONIC OBSTRUCTIVE PULMONARY DISEASE
     Dosage: UNK, UNKNOWN
     Route: 065
  8. SYMBICORT [Concomitant]
     Indication: CHRONIC OBSTRUCTIVE PULMONARY DISEASE
     Dosage: UNK, UNKNOWN
     Route: 065

REACTIONS (1)
  - ACUTE CORONARY SYNDROME [None]
